FAERS Safety Report 21043332 (Version 1)
Quarter: 2022Q3

REPORT INFORMATION
  Report Type: Spontaneous
  Country: IL (occurrence: IL)
  Receive Date: 20220705
  Receipt Date: 20220705
  Transmission Date: 20221026
  Serious: Yes (Other)
  Sender: FDA-Public Use
  Company Number: IL-009507513-2206ISR009064

PATIENT
  Age: 77 Year
  Sex: Female

DRUGS (1)
  1. KEYTRUDA [Suspect]
     Active Substance: PEMBROLIZUMAB
     Indication: Metastatic renal cell carcinoma
     Dosage: UNK
     Dates: start: 202112

REACTIONS (9)
  - Neuropathy peripheral [Unknown]
  - Respiration abnormal [Unknown]
  - Haemoglobin abnormal [Unknown]
  - Blood pressure systolic abnormal [Unknown]
  - Physiotherapy [Unknown]
  - Blood alkaline phosphatase increased [Unknown]
  - Cough [Unknown]
  - Fatigue [Unknown]
  - Malaise [Unknown]

NARRATIVE: CASE EVENT DATE: 20211201
